FAERS Safety Report 5868511-X (Version None)
Quarter: 2008Q3

REPORT INFORMATION
  Report Type: 
  Country: None (occurrence: None)
  Receive Date: 20080902
  Receipt Date: 20080902
  Transmission Date: 20090109
  Serious: Yes (Disabling)
  Sender: FDA-Public Use
  Company Number: None

PATIENT
  Age: 40 Year
  Sex: Male

DRUGS (1)
  1. DAPTOMYCIN [Suspect]
     Indication: INFECTION
     Dosage: 4 MG/KG Q24H IV, 1 DOSE
     Route: 042
     Dates: start: 20080708, end: 20080709

REACTIONS (1)
  - RASH PAPULAR [None]
